FAERS Safety Report 5152131-9 (Version None)
Quarter: 2006Q4

REPORT INFORMATION
  Report Type: 
  Country: None (occurrence: None)
  Receive Date: 20061116
  Receipt Date: 20061106
  Transmission Date: 20070319
  Serious: Yes (Death)
  Sender: FDA-Public Use
  Company Number: US-AMGEN-US199283

PATIENT
  Sex: Female

DRUGS (2)
  1. ARANESP [Suspect]
     Indication: MYELODYSPLASTIC SYNDROME
     Dates: end: 20060101
  2. NEULASTA [Suspect]
     Indication: MYELODYSPLASTIC SYNDROME
     Dates: end: 20060101

REACTIONS (1)
  - ACUTE LEUKAEMIA [None]
